FAERS Safety Report 13489443 (Version 1)
Quarter: 2017Q2

REPORT INFORMATION
  Report Type: Spontaneous
  Country: US (occurrence: US)
  Receive Date: 20170427
  Receipt Date: 20170427
  Transmission Date: 20170830
  Serious: Yes (Other)
  Sender: FDA-Public Use
  Company Number: None

PATIENT
  Age: 15 Year
  Sex: Female
  Weight: 47.7 kg

DRUGS (14)
  1. MED. PORT [Concomitant]
  2. G-TUBE [Concomitant]
  3. CARNITOR [Concomitant]
     Active Substance: LEVOCARNITINE
  4. PREVACID [Concomitant]
     Active Substance: LANSOPRAZOLE
  5. LEVETIRACETAM. [Suspect]
     Active Substance: LEVETIRACETAM
     Indication: FACIAL SPASM
     Dosage: ?          QUANTITY:2 TABLESPOON(S);OTHER ROUTE:G-TUBE?
     Dates: start: 20160501
  6. LEVETIRACETAM. [Suspect]
     Active Substance: LEVETIRACETAM
     Indication: TREMOR
     Dosage: ?          QUANTITY:2 TABLESPOON(S);OTHER ROUTE:G-TUBE?
     Dates: start: 20160501
  7. LEVETIRACETAM. [Concomitant]
     Active Substance: LEVETIRACETAM
  8. BACLOFEN. [Concomitant]
     Active Substance: BACLOFEN
  9. COENZYME Q10 [Concomitant]
     Active Substance: UBIDECARENONE
  10. ZANTAC [Concomitant]
     Active Substance: RANITIDINE HYDROCHLORIDE
  11. D-RIBOSE [Concomitant]
     Active Substance: DIETARY SUPPLEMENT
  12. LEVETIRACETAM. [Suspect]
     Active Substance: LEVETIRACETAM
     Indication: SEIZURE LIKE PHENOMENA
     Dosage: ?          QUANTITY:2 TABLESPOON(S);OTHER ROUTE:G-TUBE?
     Dates: start: 20160501
  13. VITAMIN D [Concomitant]
     Active Substance: CHOLECALCIFEROL
  14. MIRALAX [Concomitant]
     Active Substance: POLYETHYLENE GLYCOL 3350

REACTIONS (4)
  - Pain [None]
  - Abdominal distension [None]
  - Therapy change [None]
  - Urinary retention [None]

NARRATIVE: CASE EVENT DATE: 20161101
